FAERS Safety Report 21720966 (Version 1)
Quarter: 2022Q4

REPORT INFORMATION
  Report Type: Spontaneous
  Country: TR (occurrence: TR)
  Receive Date: 20221213
  Receipt Date: 20221213
  Transmission Date: 20230113
  Serious: Yes (Hospitalization)
  Sender: FDA-Public Use
  Company Number: TR-STRIDES ARCOLAB LIMITED-2022SP016649

PATIENT
  Age: 6 Month
  Sex: Male

DRUGS (7)
  1. ETOPOSIDE [Suspect]
     Active Substance: ETOPOSIDE
     Indication: Familial haemophagocytic lymphohistiocytosis
     Dosage: UNK, HLH-2004 CHEMOTHERAPY REGIMEN
     Route: 065
  2. DEXAMETHASONE [Suspect]
     Active Substance: DEXAMETHASONE
     Indication: Familial haemophagocytic lymphohistiocytosis
     Dosage: UNK, HLH-2004 CHEMOTHERAPY REGIMEN
     Route: 065
  3. DEXAMETHASONE [Suspect]
     Active Substance: DEXAMETHASONE
     Indication: Evidence based treatment
     Dosage: UNK, EMPIRIC TREATMENT
     Route: 065
  4. METHOTREXATE [Suspect]
     Active Substance: METHOTREXATE
     Indication: Familial haemophagocytic lymphohistiocytosis
     Dosage: UNK, HLH-2004 CHEMOTHERAPY REGIMEN
     Route: 065
  5. PREDNISOLONE [Suspect]
     Active Substance: PREDNISOLONE
     Indication: Familial haemophagocytic lymphohistiocytosis
     Dosage: UNK, HLH-2004 CHEMOTHERAPY REGIMEN
     Route: 065
  6. CYCLOSPORINE [Suspect]
     Active Substance: CYCLOSPORINE
     Indication: Familial haemophagocytic lymphohistiocytosis
     Dosage: UNK, HLH-2004 CHEMOTHERAPY REGIMEN
     Route: 065
  7. CYCLOSPORINE [Suspect]
     Active Substance: CYCLOSPORINE
     Indication: Evidence based treatment
     Dosage: UNK, EMPIRIC TREATMENT
     Route: 065

REACTIONS (3)
  - Respiratory distress [Unknown]
  - COVID-19 pneumonia [Recovered/Resolved]
  - Off label use [Unknown]
